FAERS Safety Report 16965710 (Version 1)
Quarter: 2019Q4

REPORT INFORMATION
  Report Type: Report from Study
  Country: GB (occurrence: GB)
  Receive Date: 20191028
  Receipt Date: 20191028
  Transmission Date: 20200122
  Serious: Yes (Other)
  Sender: FDA-Public Use
  Company Number: GB-PFIZER INC-2019459756

PATIENT
  Age: 76 Year
  Sex: Female
  Weight: 66.3 kg

DRUGS (6)
  1. CARBOPLATIN. [Suspect]
     Active Substance: CARBOPLATIN
     Indication: SMALL CELL LUNG CANCER
     Dosage: 450 MG, EVERY 3 WEEKS
     Route: 042
     Dates: start: 20190808
  2. ETOPOSIDE. [Suspect]
     Active Substance: ETOPOSIDE
     Indication: SMALL CELL LUNG CANCER
     Dosage: 250 MG, EVERY 3 WEEKS (DAY 2 + 3)
     Route: 048
     Dates: start: 20190809
  3. MORPHINE [Concomitant]
     Active Substance: MORPHINE
     Indication: PAIN
     Dosage: 5 MG, UNK (10 MG/5ML)
     Route: 048
     Dates: start: 20190719
  4. MORPHINE [Concomitant]
     Active Substance: MORPHINE
     Dosage: 2 UNKNOWN UNIT, DAILY
     Route: 048
  5. ATEZOLIZUMAB. [Suspect]
     Active Substance: ATEZOLIZUMAB
     Indication: SMALL CELL LUNG CANCER
     Dosage: 1200 MG, EVERY 3 WEEKS
     Route: 042
     Dates: start: 20190808
  6. ETOPOSIDE. [Suspect]
     Active Substance: ETOPOSIDE
     Dosage: 120 MG, EVERY 3 WEEKS
     Route: 042
     Dates: start: 20190808

REACTIONS (2)
  - Neck pain [Recovering/Resolving]
  - Pyrexia [Recovered/Resolved]

NARRATIVE: CASE EVENT DATE: 20190919
